FAERS Safety Report 14909083 (Version 1)
Quarter: 2018Q2

REPORT INFORMATION
  Report Type: Spontaneous
  Country: IE (occurrence: IE)
  Receive Date: 20180517
  Receipt Date: 20180517
  Transmission Date: 20180711
  Serious: Yes (Other)
  Sender: FDA-Public Use
  Company Number: PHHY2018IE064835

PATIENT
  Age: 47 Year

DRUGS (5)
  1. DABRAFENIB [Suspect]
     Active Substance: DABRAFENIB
     Indication: METASTATIC MALIGNANT MELANOMA
     Dosage: 150 MG, BID
     Route: 065
     Dates: start: 20151215, end: 20160919
  2. PREDNISOLONE. [Suspect]
     Active Substance: PREDNISOLONE
     Indication: PRODUCT USED FOR UNKNOWN INDICATION
     Dosage: 1 MG/KG, UNK
     Route: 048
     Dates: start: 20180419
  3. PEMBROLIZUMAB. [Suspect]
     Active Substance: PEMBROLIZUMAB
     Indication: PRODUCT USED FOR UNKNOWN INDICATION
     Dosage: 2 MG/KG, UNK
     Route: 042
     Dates: start: 20160921, end: 201803
  4. PREDNISOLONE. [Suspect]
     Active Substance: PREDNISOLONE
     Dosage: 5-10 MG/WEEK TAPPERING
     Route: 048
  5. TRAMETINIB [Suspect]
     Active Substance: TRAMETINIB
     Indication: METASTATIC MALIGNANT MELANOMA
     Dosage: 2 MG, QD
     Route: 065
     Dates: start: 20160121, end: 20160919

REACTIONS (5)
  - Metastases to central nervous system [Unknown]
  - Rash [Unknown]
  - Malignant neoplasm progression [Unknown]
  - Metastatic malignant melanoma [Unknown]
  - Arthralgia [Recovering/Resolving]

NARRATIVE: CASE EVENT DATE: 201609
